FAERS Safety Report 26190961 (Version 1)
Quarter: 2025Q4

REPORT INFORMATION
  Report Type: Spontaneous
  Country: JP (occurrence: JP)
  Receive Date: 20251223
  Receipt Date: 20251223
  Transmission Date: 20260118
  Serious: Yes (Death, Other)
  Sender: MERCK SHARP & DOHME LLC
  Company Number: JP-009507513-2362618

PATIENT
  Age: 71 Year
  Sex: Male

DRUGS (3)
  1. KEYTRUDA [Suspect]
     Active Substance: PEMBROLIZUMAB
     Indication: Bile duct cancer stage IV
     Dosage: 1 CYCLE
     Route: 041
     Dates: start: 20250922, end: 20250922
  2. GEMCITABINE HYDROCHLORIDE [Suspect]
     Active Substance: GEMCITABINE HYDROCHLORIDE
     Indication: Bile duct cancer stage IV
     Dosage: LAST ADMIN DATE:2025
     Route: 065
     Dates: start: 20250922
  3. CISPLATIN [Suspect]
     Active Substance: CISPLATIN
     Indication: Bile duct cancer stage IV
     Dosage: LAST ADMIN DATE:2025
     Route: 065
     Dates: start: 20250922

REACTIONS (6)
  - Aspiration [Fatal]
  - Physical deconditioning [Unknown]
  - Mesenteritis [Fatal]
  - Malignant neoplasm progression [Unknown]
  - Ascites [Unknown]
  - Portal vein occlusion [Unknown]

NARRATIVE: CASE EVENT DATE: 20250101
